FAERS Safety Report 11433151 (Version 1)
Quarter: 2015Q3

REPORT INFORMATION
  Report Type: Report from Study
  Country: ZA (occurrence: ZA)
  Receive Date: 20150829
  Receipt Date: 20150829
  Transmission Date: 20151125
  Serious: Yes (Congenital Anomaly, Other)
  Sender: FDA-Public Use
  Company Number: ZA-AUROBINDO-AUR-APL-2015-07764

PATIENT

DRUGS (5)
  1. NEVIRAPINE. [Suspect]
     Active Substance: NEVIRAPINE
     Indication: ANTIVIRAL TREATMENT
     Route: 064
  2. ERTAPENEM SODIUM [Concomitant]
     Active Substance: ERTAPENEM SODIUM
     Indication: UPPER RESPIRATORY TRACT INFECTION
     Route: 064
  3. AMIKACIN                           /00391002/ [Concomitant]
     Active Substance: AMIKACIN
     Indication: UPPER RESPIRATORY TRACT INFECTION
     Route: 064
  4. METRONIDAZOLE. [Concomitant]
     Active Substance: METRONIDAZOLE
     Indication: LOWER RESPIRATORY TRACT INFECTION
     Route: 064
  5. AMPICILLIN [Concomitant]
     Active Substance: AMPICILLIN
     Indication: PRODUCT USED FOR UNKNOWN INDICATION
     Route: 064

REACTIONS (4)
  - Foetal distress syndrome [Unknown]
  - Neonatal asphyxia [Unknown]
  - Low birth weight baby [Unknown]
  - Foetal exposure during pregnancy [Unknown]
